FAERS Safety Report 9005951 (Version 3)
Quarter: 2013Q1

REPORT INFORMATION
  Report Type: Spontaneous
  Country: US (occurrence: US)
  Receive Date: 20130109
  Receipt Date: 20130114
  Transmission Date: 20140127
  Serious: No
  Sender: FDA-Public Use
  Company Number: US-PFIZER INC-2013004769

PATIENT
  Age: 38 Year
  Sex: Male
  Weight: 75 kg

DRUGS (5)
  1. DEPO-TESTOSTERONE [Suspect]
     Indication: ANDROGEN DEFICIENCY
     Dosage: 100 MG, WEEKLY
     Route: 030
     Dates: start: 2012
  2. FLEXERIL [Concomitant]
     Dosage: UNK
     Route: 048
  3. ULTRAM [Concomitant]
     Dosage: UNK
     Route: 048
  4. SEROQUEL [Concomitant]
     Dosage: UNK
     Route: 048
  5. ADDERALL [Concomitant]
     Dosage: UNK
     Route: 048

REACTIONS (5)
  - Product deposit [Unknown]
  - Musculoskeletal discomfort [Recovered/Resolved]
  - Pain in extremity [Recovered/Resolved]
  - Gait disturbance [Recovered/Resolved]
  - Pain [Unknown]
